FAERS Safety Report 4883453-4 (Version None)
Quarter: 2006Q1

REPORT INFORMATION
  Report Type: 
  Country: None (occurrence: None)
  Receive Date: 20060118
  Receipt Date: 20050927
  Transmission Date: 20060701
  Serious: Yes (Hospitalization)
  Sender: FDA-Public Use
  Company Number: US-MERCK-0509USA04609

PATIENT
  Age: 75 Year
  Sex: Female
  Weight: 73 kg

DRUGS (17)
  1. PERCOCET [Concomitant]
     Route: 065
  2. VIOXX [Suspect]
     Indication: MYALGIA
     Route: 048
     Dates: start: 20010101, end: 20041006
  3. VIOXX [Suspect]
     Indication: ARTHRALGIA
     Route: 048
     Dates: start: 20010101, end: 20041006
  4. LEVOTHYROXINE SODIUM [Concomitant]
     Route: 065
  5. COZAAR [Concomitant]
     Route: 065
  6. LIPITOR [Concomitant]
     Route: 065
  7. RANITIDINE [Concomitant]
     Route: 065
  8. NEXIUM [Concomitant]
     Route: 065
  9. VITAMIN D (UNSPECIFIED) [Concomitant]
     Route: 065
  10. ASPIRIN [Concomitant]
     Route: 065
  11. NORVASC [Concomitant]
     Route: 065
  12. FOSAMAX [Concomitant]
     Route: 065
  13. ENDOCET [Concomitant]
     Route: 065
  14. LORTAB [Concomitant]
     Route: 065
  15. CIPRO [Concomitant]
     Route: 065
  16. ZOCOR [Concomitant]
     Route: 065
  17. [THERAPY UNSPECIFIED] [Concomitant]
     Route: 065

REACTIONS (15)
  - ACUTE MYOCARDIAL INFARCTION [None]
  - ANXIETY [None]
  - ARTHROPATHY [None]
  - ATRIAL FIBRILLATION [None]
  - AZOTAEMIA [None]
  - CARDIOVASCULAR DISORDER [None]
  - CHEST PAIN [None]
  - CORONARY ARTERY DISEASE [None]
  - GASTROOESOPHAGEAL REFLUX DISEASE [None]
  - HERPES ZOSTER [None]
  - HYPERCHOLESTEROLAEMIA [None]
  - HYPERTENSION [None]
  - INTERMITTENT CLAUDICATION [None]
  - INTERVERTEBRAL DISC DEGENERATION [None]
  - PERIPHERAL VASCULAR DISORDER [None]
